FAERS Safety Report 9805342 (Version 3)
Quarter: 2014Q1

REPORT INFORMATION
  Report Type: Spontaneous
  Country: IT (occurrence: None)
  Receive Date: 20140106
  Receipt Date: 20140218
  Transmission Date: 20141002
  Serious: Yes (Other)
  Sender: FDA-Public Use
  Company Number: 2013AP010844

PATIENT
  Age: 38 Year
  Sex: Male

DRUGS (5)
  1. LEVOFLOXACIN [Suspect]
     Indication: INFECTION
     Route: 048
     Dates: start: 20130806, end: 20130808
  2. PARACETAMOL W/CODEINE PHOSPHATE [Concomitant]
  3. ENOXAPARIN SODIUM (ENOXAPARIN SODIUM) [Concomitant]
  4. IBUPROFEN (IBUPROFE) [Concomitant]
  5. PARACETAMOL (PARACETAMOL) [Concomitant]

REACTIONS (4)
  - Hypersensitivity [None]
  - Periorbital oedema [None]
  - Oedema peripheral [None]
  - Urticaria [None]
